FAERS Safety Report 25691009 (Version 1)
Quarter: 2025Q3

REPORT INFORMATION
  Report Type: Spontaneous
  Country: JP (occurrence: JP)
  Receive Date: 20250818
  Receipt Date: 20250818
  Transmission Date: 20251021
  Serious: Yes (Other)
  Sender: MACLEODS
  Company Number: JP-MACLEODS PHARMA-MAC2025054696

PATIENT

DRUGS (11)
  1. CLOBETASOL [Suspect]
     Active Substance: CLOBETASOL
     Indication: Benign familial pemphigus
     Dosage: SAMPLE APPLICATION DOSES OF UP TO 50 G/DAY
     Route: 061
  2. HYDROCORTISONE [Suspect]
     Active Substance: HYDROCORTISONE
     Indication: Glucocorticoids abnormal
     Dosage: AT A DOSE OF 15 MG/DAY
     Route: 048
  3. HYDROCORTISONE [Suspect]
     Active Substance: HYDROCORTISONE
     Indication: Withdrawal syndrome
  4. HYDROCORTISONE [Suspect]
     Active Substance: HYDROCORTISONE
     Dosage: 9 DAYS AFTER HER INITIAL VISIT TO THE DEPARTMENT, THE HYDROCORTISONE DOSE WAS INCREASED TO20 MG/DAY
     Route: 048
  5. HYDROCORTISONE [Suspect]
     Active Substance: HYDROCORTISONE
     Dosage: THE HYDROCORTISONE DOSE WAS REDUCED TO 15 MG/DAY
     Route: 048
  6. BETAMETHASONE [Suspect]
     Active Substance: BETAMETHASONE
     Indication: Benign familial pemphigus
     Route: 061
  7. BETAMETHASONE [Suspect]
     Active Substance: BETAMETHASONE
     Dosage: THE DOSE OF BETAMETHASONE WAS REDUCED TO 15 G/DAY
     Route: 061
  8. BETAMETHASONE [Suspect]
     Active Substance: BETAMETHASONE
     Dosage: READMITTED 48 DAYS LATER, AND THE DOSE OF BETAMETHASONE OINTMENT WAS INCREASED TO 40-50 G/DAY.
     Route: 061
  9. BETAMETHASONE [Suspect]
     Active Substance: BETAMETHASONE
     Dosage: ON DAY 90
     Route: 061
  10. BETAMETHASONE DIPROPIONATE\CALCIPOTRIENE MONOHYDRATE [Suspect]
     Active Substance: BETAMETHASONE DIPROPIONATE\CALCIPOTRIENE MONOHYDRATE
     Indication: Benign familial pemphigus
     Route: 061
  11. APREMILAST [Concomitant]
     Active Substance: APREMILAST
     Indication: Product used for unknown indication
     Route: 065

REACTIONS (9)
  - Adrenal insufficiency [Unknown]
  - Steroid withdrawal syndrome [Unknown]
  - Compression fracture [Unknown]
  - Condition aggravated [Unknown]
  - Pseudo Cushing^s syndrome [Unknown]
  - Glucose tolerance impaired [Unknown]
  - Osteoporosis [Unknown]
  - Insomnia [Recovering/Resolving]
  - Oral candidiasis [Unknown]
